FAERS Safety Report 16657478 (Version 3)
Quarter: 2020Q2

REPORT INFORMATION
  Report Type: Spontaneous
  Country: US (occurrence: US)
  Receive Date: 20190801
  Receipt Date: 20200616
  Transmission Date: 20200713
  Serious: No
  Sender: FDA-Public Use
  Company Number: US-SA-2019SA206132

PATIENT

DRUGS (2)
  1. DUPIXENT [Suspect]
     Active Substance: DUPILUMAB
     Indication: PSORIASIS
     Dosage: 300 MG, QOW
     Route: 058
     Dates: start: 20180222
  2. EUCRISA [Concomitant]
     Active Substance: CRISABOROLE

REACTIONS (4)
  - Psoriasis [Not Recovered/Not Resolved]
  - Product use in unapproved indication [Unknown]
  - Sleep disorder [Not Recovered/Not Resolved]
  - Rash [Not Recovered/Not Resolved]

NARRATIVE: CASE EVENT DATE: 20180222
